FAERS Safety Report 26173653 (Version 1)
Quarter: 2025Q4

REPORT INFORMATION
  Report Type: Report from Study
  Country: EU (occurrence: EU)
  Receive Date: 20251218
  Receipt Date: 20251218
  Transmission Date: 20260118
  Serious: Yes (Other)
  Sender: NEXUS PHARMACEUTICALS
  Company Number: EU-Nexus Pharma-000543

PATIENT

DRUGS (1)
  1. CYCLOPHOSPHAMIDE [Suspect]
     Active Substance: CYCLOPHOSPHAMIDE
     Indication: Multiple sclerosis
     Dosage: FOUR DOSES OF CYCLOPHOSPHAMIDE AT 50MG/KG BODY WEIGHT, ADMINISTERED FROM DAY -5 TO DAY -1

REACTIONS (1)
  - Cytomegalovirus infection reactivation [Unknown]
